FAERS Safety Report 21473617 (Version 1)
Quarter: 2022Q4

REPORT INFORMATION
  Report Type: Spontaneous
  Country: US (occurrence: None)
  Receive Date: 20221018
  Receipt Date: 20221018
  Transmission Date: 20230113
  Serious: Yes (Hospitalization, Other)
  Sender: FDA-Public Use
  Company Number: 2022A345436

PATIENT
  Age: 23259 Day
  Sex: Female

DRUGS (3)
  1. TEZSPIRE [Suspect]
     Active Substance: TEZEPELUMAB-EKKO
     Route: 065
     Dates: start: 20220811
  2. DUPILUMAB [Suspect]
     Active Substance: DUPILUMAB
     Indication: Asthma
     Route: 058
     Dates: start: 20200923
  3. DUPILUMAB [Suspect]
     Active Substance: DUPILUMAB
     Indication: Asthma
     Route: 058

REACTIONS (4)
  - Pneumothorax [Recovered/Resolved]
  - Fungal infection [Recovered/Resolved]
  - Sensation of foreign body [Recovered/Resolved]
  - Drug ineffective [Recovered/Resolved]

NARRATIVE: CASE EVENT DATE: 20220822
